FAERS Safety Report 10048409 (Version 1)
Quarter: 2014Q1

REPORT INFORMATION
  Report Type: Spontaneous
  Country: US (occurrence: None)
  Receive Date: 20140327
  Receipt Date: 20140327
  Transmission Date: 20141002
  Serious: Yes (Death)
  Sender: FDA-Public Use
  Company Number: QSC-2014-0141

PATIENT
  Age: 67 Year
  Sex: Male

DRUGS (1)
  1. H.P. ACTHAR GEL (ADRENOCORTICOTROPIC HORMONE) GEL FOR INJECTION, 80U/ML [Suspect]
     Indication: POLYMYOSITIS
     Route: 058
     Dates: start: 20131207, end: 20140204

REACTIONS (3)
  - Sudden death [None]
  - Abdominal pain [None]
  - Fluid retention [None]
